FAERS Safety Report 13350414 (Version 2)
Quarter: 2017Q3

REPORT INFORMATION
  Report Type: Spontaneous
  Country: US (occurrence: US)
  Receive Date: 20170320
  Receipt Date: 20170822
  Transmission Date: 20171127
  Serious: Yes (Other)
  Sender: FDA-Public Use
  Company Number: PHEH2017US007990

PATIENT
  Age: 35 Year
  Sex: Female
  Weight: 77 kg

DRUGS (2)
  1. COSENTYX [Suspect]
     Active Substance: SECUKINUMAB
     Dosage: 300 MG, UNK
     Route: 058
     Dates: start: 20170323
  2. COSENTYX [Suspect]
     Active Substance: SECUKINUMAB
     Indication: PSORIASIS
     Dosage: 300 MG, QW (FOR 5 WEEKS)
     Route: 058
     Dates: start: 20170119

REACTIONS (4)
  - Lower respiratory tract infection [Recovered/Resolved]
  - Upper respiratory tract infection [Unknown]
  - Cough [Recovered/Resolved]
  - Atypical pneumonia [Recovered/Resolved]

NARRATIVE: CASE EVENT DATE: 20170214
